FAERS Safety Report 18339851 (Version 2)
Quarter: 2021Q1

REPORT INFORMATION
  Report Type: Report from Study
  Country: GR (occurrence: GR)
  Receive Date: 20201002
  Receipt Date: 20210105
  Transmission Date: 20210419
  Serious: Yes (Hospitalization, Other)
  Sender: FDA-Public Use
  Company Number: GR-TAKEDA-2020TUS041145

PATIENT
  Age: 18 Year
  Sex: Female

DRUGS (1)
  1. VEDOLIZUMAB [Suspect]
     Active Substance: VEDOLIZUMAB
     Indication: CROHN^S DISEASE
     Dosage: UNK
     Route: 042
     Dates: start: 20191116, end: 20200824

REACTIONS (3)
  - Intestinal stenosis [Recovering/Resolving]
  - Intestinal fistula [Recovering/Resolving]
  - Drug ineffective [Unknown]
